FAERS Safety Report 21115834 (Version 7)
Quarter: 2024Q4

REPORT INFORMATION
  Report Type: Spontaneous
  Country: US (occurrence: US)
  Receive Date: 20220721
  Receipt Date: 20241019
  Transmission Date: 20250115
  Serious: No
  Sender: SANOFI AVENTIS
  Company Number: US-SA-SAC20220719000273

PATIENT
  Age: 76 Year
  Sex: Female

DRUGS (1)
  1. DUPIXENT [Suspect]
     Active Substance: DUPILUMAB
     Indication: Dermatitis allergic
     Dosage: 300 MG, QOW
     Route: 058
     Dates: start: 20220216

REACTIONS (11)
  - Lacrimation increased [Unknown]
  - Dry skin [Unknown]
  - Skin fissures [Unknown]
  - Rash pruritic [Unknown]
  - Ocular hyperaemia [Unknown]
  - Urticaria [Unknown]
  - Pruritus [Unknown]
  - Eye swelling [Unknown]
  - Rash [Unknown]
  - Eye pruritus [Unknown]
  - Product dose omission in error [Unknown]

NARRATIVE: CASE EVENT DATE: 20240801
